FAERS Safety Report 15698969 (Version 1)
Quarter: 2018Q4

REPORT INFORMATION
  Report Type: Spontaneous
  Country: None (occurrence: KR)
  Receive Date: 20181207
  Receipt Date: 20181207
  Transmission Date: 20190205
  Serious: Yes (Hospitalization, Other)
  Sender: FDA-Public Use
  Company Number: KR-ORION CORPORATION ORION PHARMA-ENTC2018-0379

PATIENT
  Age: 77 Year
  Sex: Female

DRUGS (1)
  1. LEVODOPA-CARBIDOPA-ENTACAPONE [Suspect]
     Active Substance: CARBIDOPA\ENTACAPONE\LEVODOPA
     Indication: PARKINSON^S DISEASE
     Dosage: STRENGTH: 100/25/200 MG
     Route: 065

REACTIONS (11)
  - Mental status changes [Recovered/Resolved]
  - Loss of consciousness [Recovered/Resolved]
  - Scleral discolouration [Recovered/Resolved]
  - Intentional overdose [Unknown]
  - Suicide attempt [Unknown]
  - Hypotension [Recovered/Resolved]
  - Pupillary reflex impaired [Recovered/Resolved]
  - Chromaturia [Recovered/Resolved]
  - Stupor [Recovered/Resolved]
  - Mydriasis [Recovered/Resolved]
  - Yellow skin [Recovered/Resolved]
